FAERS Safety Report 11070674 (Version 2)
Quarter: 2015Q4

REPORT INFORMATION
  Report Type: Report from Study
  Country: CO (occurrence: CO)
  Receive Date: 20150427
  Receipt Date: 20151208
  Transmission Date: 20160304
  Serious: Yes (Other)
  Sender: FDA-Public Use
  Company Number: PHHY2015CO047173

PATIENT
  Sex: Female

DRUGS (1)
  1. SIGNIFOR [Suspect]
     Active Substance: PASIREOTIDE
     Indication: CUSHING^S SYNDROME
     Dosage: 0.6 MG, BID
     Route: 058
     Dates: start: 20150414

REACTIONS (5)
  - Product use issue [Unknown]
  - Blood glucose decreased [Unknown]
  - Feeling cold [Unknown]
  - Cortisol free urine increased [Unknown]
  - Blood glucose increased [Unknown]
